FAERS Safety Report 13314186 (Version 1)
Quarter: 2017Q1

REPORT INFORMATION
  Report Type: Spontaneous
  Country: US (occurrence: US)
  Receive Date: 20170309
  Receipt Date: 20170309
  Transmission Date: 20170428
  Serious: No
  Sender: FDA-Public Use
  Company Number: US-TURING PHARMACEUTICALS-2016TNG00043

PATIENT
  Age: 50 Year

DRUGS (1)
  1. DARAPRIM [Suspect]
     Active Substance: PYRIMETHAMINE
     Indication: TOXOPLASMOSIS
     Dosage: 3 TABLETS, 1X/DAY
     Route: 048
     Dates: start: 20160409

REACTIONS (2)
  - Pruritus generalised [None]
  - Pruritus [Unknown]

NARRATIVE: CASE EVENT DATE: 20160901
